FAERS Safety Report 25803824 (Version 3)
Quarter: 2025Q3

REPORT INFORMATION
  Report Type: Spontaneous
  Country: US (occurrence: US)
  Receive Date: 20250915
  Receipt Date: 20250930
  Transmission Date: 20251020
  Serious: Yes (Other)
  Sender: PFIZER
  Company Number: US-PFIZER INC-202500181333

PATIENT
  Age: 86 Year
  Sex: Female
  Weight: 70.295 kg

DRUGS (2)
  1. PAXLOVID [Suspect]
     Active Substance: NIRMATRELVIR\RITONAVIR
     Indication: COVID-19 treatment
     Dosage: [NIRMATRELVIR 300 MG]/[RITONAVIR 100 MG]; 2X/DAY
     Route: 048
     Dates: start: 20250911, end: 20250916
  2. VICKS DAYQUIL/NYQUIL [Concomitant]
     Dates: start: 202509

REACTIONS (6)
  - Chest pain [Unknown]
  - Dizziness [Unknown]
  - Somnolence [Recovering/Resolving]
  - Poor quality sleep [Recovering/Resolving]
  - Dry mouth [Unknown]
  - Tongue discomfort [Unknown]

NARRATIVE: CASE EVENT DATE: 20250901
